FAERS Safety Report 4767238-5 (Version None)
Quarter: 2005Q3

REPORT INFORMATION
  Report Type: 
  Country: None (occurrence: None)
  Receive Date: 20050909
  Receipt Date: 20050909
  Transmission Date: 20060218
  Serious: Yes (Death)
  Sender: FDA-Public Use
  Company Number: None

PATIENT
  Age: 48 Year
  Sex: Male

DRUGS (9)
  1. CISPLATIN [Suspect]
     Indication: METASTATIC GASTRIC CANCER
     Dosage: 25MG/M2 DAYS 1 + 8 IV
     Route: 042
     Dates: start: 20050706
  2. IRINOTECAN HCL [Suspect]
     Indication: METASTATIC GASTRIC CANCER
     Dosage: 65 MG/M2 DAYS 1 + 8 IV
     Route: 042
     Dates: start: 20050706
  3. FLUOROURACIL [Suspect]
     Indication: METASTATIC GASTRIC CANCER
     Dosage: 260 MG/M2 IV CONTINUOUS
     Route: 042
     Dates: start: 20050707, end: 20050711
  4. ATIVAN [Concomitant]
  5. COLACE [Concomitant]
  6. COMPAZINE [Concomitant]
  7. NEXIUM [Concomitant]
  8. SENNA [Concomitant]
  9. FENTANYL [Concomitant]

REACTIONS (1)
  - PULMONARY EMBOLISM [None]
